FAERS Safety Report 9625432 (Version 1)
Quarter: 2013Q4

REPORT INFORMATION
  Report Type: Report from Study
  Country: ZA (occurrence: ZA)
  Receive Date: 20131016
  Receipt Date: 20131016
  Transmission Date: 20140711
  Serious: Yes (Hospitalization)
  Sender: FDA-Public Use
  Company Number: ZA-ROCHE-1287641

PATIENT
  Sex: Male

DRUGS (4)
  1. MIRCERA [Suspect]
     Indication: NEPHROGENIC ANAEMIA
     Route: 058
     Dates: start: 20130415
  2. MIRCERA [Suspect]
     Route: 058
     Dates: start: 20120116
  3. MIRCERA [Suspect]
     Route: 058
     Dates: start: 20120524
  4. MIRCERA [Suspect]
     Route: 058
     Dates: start: 20120613

REACTIONS (1)
  - Pneumonia [Unknown]
